FAERS Safety Report 24296242 (Version 3)
Quarter: 2024Q3

REPORT INFORMATION
  Report Type: Spontaneous
  Country: US (occurrence: US)
  Receive Date: 20240909
  Receipt Date: 20240924
  Transmission Date: 20241016
  Serious: No
  Sender: CHATTEM
  Company Number: US-OPELLA-2024OHG030228

PATIENT
  Age: 72 Year
  Sex: Female

DRUGS (3)
  1. SELSUN BLUE MEDICATED [Suspect]
     Active Substance: SELENIUM SULFIDE
     Indication: Seborrhoea
     Dosage: BATCH NUMBER: 4CT8202, EXPIRY DATE: 31-JUL-2026, BATCH NUMBER: 4CTB202P1, EXPIRY DATE: 31-JUL-2026
  2. SELSUN BLUE MEDICATED [Suspect]
     Active Substance: SELENIUM SULFIDE
     Dosage: BATCH NUMBER: 4CTB202P1, EXPIRY DATE: 31-JUL-2026
  3. SELSUN BLUE MEDICATED [Suspect]
     Active Substance: SELENIUM SULFIDE
     Dates: start: 20240903

REACTIONS (2)
  - Drug effect less than expected [Unknown]
  - No adverse event [Unknown]
